FAERS Safety Report 17459996 (Version 2)
Quarter: 2020Q1

REPORT INFORMATION
  Report Type: Spontaneous
  Country: QA (occurrence: QA)
  Receive Date: 20200226
  Receipt Date: 20200302
  Transmission Date: 20200409
  Serious: Yes (Life-Threatening, Hospitalization, Other)
  Sender: FDA-Public Use
  Company Number: QA-PFIZER INC-2020077704

PATIENT
  Age: 65 Year
  Sex: Male

DRUGS (1)
  1. IBUPROFEN. [Suspect]
     Active Substance: IBUPROFEN
     Indication: ABDOMINAL PAIN
     Dosage: 10 DF, 1X/DAY (CONSUMED TEN TABLETS OF IBUPROFEN DAILY)

REACTIONS (7)
  - Haemodynamic instability [Unknown]
  - Anaemia [Unknown]
  - Helicobacter gastritis [Unknown]
  - Melaena [Unknown]
  - Peptic ulcer [Unknown]
  - Gastric ulcer haemorrhage [Unknown]
  - Overdose [Unknown]
